FAERS Safety Report 24604340 (Version 3)
Quarter: 2024Q4

REPORT INFORMATION
  Report Type: Spontaneous
  Country: US (occurrence: US)
  Receive Date: 20241111
  Receipt Date: 20241219
  Transmission Date: 20250115
  Serious: No
  Sender: PFIZER
  Company Number: US-PFIZER INC-PV202400144258

PATIENT
  Sex: Female

DRUGS (1)
  1. TIVDAK [Suspect]
     Active Substance: TISOTUMAB VEDOTIN-TFTV
     Dosage: UNK

REACTIONS (4)
  - Eye ulcer [Recovered/Resolved]
  - Ocular discomfort [Recovered/Resolved]
  - Nasal congestion [Recovered/Resolved]
  - Sinus disorder [Recovered/Resolved]
